FAERS Safety Report 9414463 (Version 2)
Quarter: 2015Q1

REPORT INFORMATION
  Report Type: Report from Study
  Country: JP (occurrence: JP)
  Receive Date: 20130723
  Receipt Date: 20150126
  Transmission Date: 20150721
  Serious: Yes (Hospitalization, Other)
  Sender: FDA-Public Use
  Company Number: JP-009507513-1307JPN011285

PATIENT
  Sex: Male

DRUGS (3)
  1. DIAZOXIDE CAPSULES 25 MG ^MSD^ [Suspect]
     Active Substance: DIAZOXIDE
     Dosage: 4 MG IN MORNING, 3 MG IN NOON, 3 MG IN EVENING
     Route: 048
     Dates: start: 20130717, end: 20130805
  2. DIAZOXIDE CAPSULES 25 MG ^MSD^ [Suspect]
     Active Substance: DIAZOXIDE
     Dosage: 6 MG IN MORNING, 5 MG IN NOON, 5 MG IN EVENING
     Route: 048
     Dates: start: 20130705, end: 20130717
  3. DIAZOXIDE CAPSULES 25 MG ^MSD^ [Suspect]
     Active Substance: DIAZOXIDE
     Indication: HYPOGLYCAEMIA
     Dosage: 4 MG, TID
     Route: 048
     Dates: start: 20130701, end: 20130705

REACTIONS (8)
  - Fluid retention [Recovered/Resolved]
  - Anaemia neonatal [Recovered/Resolved]
  - Adrenal insufficiency [Recovered/Resolved]
  - Hypothyroidism [Recovering/Resolving]
  - Cardiac failure congestive [Unknown]
  - Cardiac failure [Recovered/Resolved]
  - Circulatory collapse [Unknown]
  - Cardiogenic shock [Unknown]

NARRATIVE: CASE EVENT DATE: 20130707
